FAERS Safety Report 7402730-6 (Version None)
Quarter: 2011Q1

REPORT INFORMATION
  Report Type: 
  Country: None (occurrence: None)
  Receive Date: 20110330
  Receipt Date: 20110315
  Transmission Date: 20110831
  Serious: Yes (Life-Threatening, Hospitalization, Other)
  Sender: FDA-Public Use
  Company Number: AUR-APL-2011-00982

PATIENT
  Age: 67 Year
  Sex: Female
  Weight: 93 kg

DRUGS (11)
  1. AMLODIPINE [Suspect]
     Dosage: 5MG-DAILY
     Dates: start: 20101105, end: 20101109
  2. IBUHEXAL [Suspect]
     Dosage: 400MG-DAILY-ORAL
     Route: 048
     Dates: start: 20101103, end: 20101103
  3. DICLOFENAC [Suspect]
     Indication: SPINAL OSTEOARTHRITIS
     Dosage: ORAL
     Route: 048
     Dates: end: 20101102
  4. ANTITHROMBOTIC AGENTS (UNSPECIFIED) [Concomitant]
  5. RAMIPRIL [Suspect]
     Dosage: 5MG-DAILY-ORAL
     Route: 048
     Dates: start: 20100923, end: 20101102
  6. AMLODIPINE [Suspect]
     Indication: HYPERTENSION
     Dosage: 5MG-DAILY-ORAL
     Route: 048
     Dates: start: 20101103, end: 20101103
  7. CORDAREX 200MG TABLET(SANOFI-AVENTIS [Suspect]
     Indication: ATRIAL FIBRILLATION
     Dosage: 200-600MG-DAILY-ORAL
     Route: 048
     Dates: start: 20100103, end: 20101109
  8. IBUPROFEN TABLETS [Suspect]
     Indication: SPINAL OSTEOARTHRITIS
     Dosage: 200MG-ORAL ; 400MG-ORAL
     Route: 048
     Dates: end: 20101102
  9. IBUPROFEN TABLETS [Suspect]
     Indication: SPINAL OSTEOARTHRITIS
     Dosage: 200MG-ORAL ; 400MG-ORAL
     Route: 048
     Dates: start: 20101103, end: 20101103
  10. DELIX [Suspect]
     Dosage: 2.5MG-BID-ORAL, 2.5 MG DAILY ORAL
     Route: 048
     Dates: start: 20101118, end: 20101129
  11. DELIX [Suspect]
     Dosage: 2.5MG-BID-ORAL, 2.5 MG DAILY ORAL
     Route: 048
     Dates: start: 20101105, end: 20101109

REACTIONS (3)
  - CHEST PAIN [None]
  - RENAL FAILURE ACUTE [None]
  - TUBULOINTERSTITIAL NEPHRITIS [None]
